FAERS Safety Report 12441781 (Version 1)
Quarter: 2016Q2

REPORT INFORMATION
  Report Type: Spontaneous
  Country: GB (occurrence: GB)
  Receive Date: 20160607
  Receipt Date: 20160607
  Transmission Date: 20160815
  Serious: Yes (Other)
  Sender: FDA-Public Use
  Company Number: GB-JNJFOC-20160602463

PATIENT
  Age: 31 Year
  Sex: Female

DRUGS (2)
  1. BENADRYL ONE A DAY RELIEF [Suspect]
     Active Substance: CETIRIZINE HYDROCHLORIDE
     Route: 065
  2. BENADRYL ONE A DAY RELIEF [Suspect]
     Active Substance: CETIRIZINE HYDROCHLORIDE
     Indication: SEASONAL ALLERGY
     Dosage: DOSE 1 (UNIT UNSPECIFIED)
     Route: 065

REACTIONS (7)
  - Hunger [Recovered/Resolved]
  - Dry mouth [Recovering/Resolving]
  - Dizziness [Recovered/Resolved]
  - Depressed mood [Recovering/Resolving]
  - Memory impairment [Recovered/Resolved]
  - Agitation [Recovered/Resolved]
  - Fatigue [Recovered/Resolved]

NARRATIVE: CASE EVENT DATE: 20160516
